FAERS Safety Report 4388026-8 (Version None)
Quarter: 2004Q2

REPORT INFORMATION
  Report Type: 
  Country: None (occurrence: None)
  Receive Date: 20040607
  Receipt Date: 20030717
  Transmission Date: 20050107
  Serious: Yes (Other)
  Sender: FDA-Public Use
  Company Number: 318013

PATIENT
  Age: 17 Year
  Sex: Female

DRUGS (2)
  1. ACCUTANE [Suspect]
     Indication: DRUG USE FOR UNKNOWN INDICATION
     Dosage: 60 MG DAILY ORAL
     Route: 048
     Dates: start: 20001116, end: 20010605
  2. ORTHO TRI-CYCLEN [Concomitant]

REACTIONS (2)
  - DEPRESSION [None]
  - LIP DRY [None]
